FAERS Safety Report 15234930 (Version 1)
Quarter: 2018Q3

REPORT INFORMATION
  Report Type: Spontaneous
  Country: US (occurrence: US)
  Receive Date: 20180803
  Receipt Date: 20180803
  Transmission Date: 20181010
  Serious: Yes (Other)
  Sender: FDA-Public Use
  Company Number: US-ACCORD-065251

PATIENT
  Age: 43 Year
  Sex: Female
  Weight: 89.81 kg

DRUGS (9)
  1. DOCETAXEL ACCORD [Suspect]
     Active Substance: DOCETAXEL
     Indication: BREAST CANCER
     Dosage: NUMBER OF CYCLES: 06
     Dates: start: 20130715, end: 20131028
  2. LORAZEPAM. [Concomitant]
     Active Substance: LORAZEPAM
  3. ERGOCALCIFEROL. [Concomitant]
     Active Substance: ERGOCALCIFEROL
  4. FAMOTIDINE. [Concomitant]
     Active Substance: FAMOTIDINE
     Dosage: STRENGTH: 20 MG
  5. SALBUTAMOL [Concomitant]
     Active Substance: ALBUTEROL
     Dates: start: 2010
  6. FLEXERIL [Concomitant]
     Active Substance: CYCLOBENZAPRINE HYDROCHLORIDE
     Dosage: STRENGTH: 10 MG
     Dates: start: 2007
  7. COMPAZINE [Concomitant]
     Active Substance: PROCHLORPERAZINE MALEATE
  8. DEXAMETHASONE. [Concomitant]
     Active Substance: DEXAMETHASONE
     Dosage: THE DAY BEFORE, DAY OF AND DAY AFTER CHEMOTHERAPY
  9. LIDOCAINE/PRILOCAINE [Concomitant]
     Route: 061

REACTIONS (1)
  - Alopecia [Not Recovered/Not Resolved]

NARRATIVE: CASE EVENT DATE: 201404
